FAERS Safety Report 11477149 (Version 1)
Quarter: 2015Q3

REPORT INFORMATION
  Report Type: Spontaneous
  Country: US (occurrence: US)
  Receive Date: 20150909
  Receipt Date: 20150909
  Transmission Date: 20151125
  Serious: No
  Sender: FDA-Public Use
  Company Number: US-JAZZ-2014-US-009502

PATIENT
  Age: 60 Year
  Sex: Female

DRUGS (4)
  1. XYREM [Suspect]
     Active Substance: SODIUM OXYBATE
     Dosage: 2.5 G, BID
     Route: 048
     Dates: start: 201408
  2. XYREM [Suspect]
     Active Substance: SODIUM OXYBATE
     Dosage: 2.5 G, BID
     Route: 048
     Dates: start: 201408, end: 2014
  3. XYREM [Suspect]
     Active Substance: SODIUM OXYBATE
     Indication: NARCOLEPSY
     Dosage: 2.25 G, BID
     Route: 048
     Dates: start: 20140726, end: 2014
  4. XYREM [Suspect]
     Active Substance: SODIUM OXYBATE
     Dosage: 2.75 G, BID
     Route: 048
     Dates: start: 201408, end: 2014

REACTIONS (7)
  - Asthenia [Recovered/Resolved]
  - Feeling abnormal [Unknown]
  - Diarrhoea [Recovered/Resolved]
  - Sinusitis [Not Recovered/Not Resolved]
  - Chills [Recovered/Resolved]
  - Nasopharyngitis [Not Recovered/Not Resolved]
  - Pyrexia [Recovered/Resolved]

NARRATIVE: CASE EVENT DATE: 20140728
